FAERS Safety Report 5378672-7 (Version None)
Quarter: 2007Q3

REPORT INFORMATION
  Report Type: 
  Country: None (occurrence: None)
  Receive Date: 20070702
  Receipt Date: 20070702
  Transmission Date: 20080115
  Serious: No
  Sender: FDA-Public Use
  Company Number: None

PATIENT

DRUGS (1)
  1. DAILY FRESHH SPEARMINT MADE IN CHINA [Suspect]
     Indication: DENTAL DISORDER PROPHYLAXIS
     Dosage: PO
     Route: 048
     Dates: start: 20050911, end: 20070607

REACTIONS (1)
  - NO ADVERSE DRUG REACTION [None]
